FAERS Safety Report 24149039 (Version 1)
Quarter: 2024Q3

REPORT INFORMATION
  Report Type: Other
  Country: TR (occurrence: TR)
  Receive Date: 20240729
  Receipt Date: 20240729
  Transmission Date: 20241016
  Serious: Yes (Hospitalization)
  Sender: MARKSANS
  Company Number: TR-Marksans Pharma Limited-2159747

PATIENT
  Age: 1 Month

DRUGS (1)
  1. ACETAMINOPHEN [Suspect]
     Active Substance: ACETAMINOPHEN
     Indication: Product used for unknown indication
     Route: 042

REACTIONS (1)
  - Toxicity to various agents [Unknown]
